FAERS Safety Report 15296994 (Version 1)
Quarter: 2018Q3

REPORT INFORMATION
  Report Type: Spontaneous
  Country: US (occurrence: US)
  Receive Date: 20180820
  Receipt Date: 20180820
  Transmission Date: 20181010
  Serious: Yes (Death)
  Sender: FDA-Public Use
  Company Number: US-ELEFSEE PHARMACEUTICALS INTERNATIONAL-US-2018WTD001179

PATIENT

DRUGS (2)
  1. LAZANDA [Suspect]
     Active Substance: FENTANYL CITRATE
     Indication: BREAST CANCER FEMALE
     Dosage: 100 ?G, PRN (EVERY 2 HOURS, ALTERNATING NOSTRILS WITH EACH DOSE)
     Route: 045
     Dates: start: 20180619, end: 20180701
  2. LAZANDA [Suspect]
     Active Substance: FENTANYL CITRATE
     Indication: BREAKTHROUGH PAIN

REACTIONS (1)
  - Death [Fatal]

NARRATIVE: CASE EVENT DATE: 20180701
